FAERS Safety Report 8563298-4 (Version None)
Quarter: 2012Q3

REPORT INFORMATION
  Report Type: 
  Country: None (occurrence: None)
  Receive Date: 20120802
  Receipt Date: 20120727
  Transmission Date: 20120928
  Serious: No
  Sender: FDA-Public Use
  Company Number: US-AMGEN-USASP2012028794

PATIENT
  Age: 53 Year
  Sex: Female

DRUGS (3)
  1. ENBREL [Suspect]
     Indication: PSORIATIC ARTHROPATHY
     Dosage: 50 MG, QWK
     Dates: start: 20120502
  2. REMICADE [Concomitant]
     Dosage: UNK
  3. ENBREL [Suspect]
     Indication: PSORIASIS

REACTIONS (6)
  - PSORIATIC ARTHROPATHY [None]
  - PSORIASIS [None]
  - MUSCLE TWITCHING [None]
  - THERAPEUTIC RESPONSE DECREASED [None]
  - SYSTEMIC LUPUS ERYTHEMATOSUS [None]
  - MUSCLE SPASMS [None]
